FAERS Safety Report 22103465 (Version 1)
Quarter: 2023Q1

REPORT INFORMATION
  Report Type: Spontaneous
  Country: US (occurrence: None)
  Receive Date: 20230316
  Receipt Date: 20230316
  Transmission Date: 20230417
  Serious: Yes (unspecified)
  Sender: FDA-Public Use
  Company Number: None

PATIENT
  Age: 8 Year
  Sex: Male
  Weight: 19.8 kg

DRUGS (2)
  1. VYVANSE [Suspect]
     Active Substance: LISDEXAMFETAMINE DIMESYLATE
     Indication: Attention deficit hyperactivity disorder
     Dosage: OTHER QUANTITY : 1 CAPSULE(S);?
     Route: 048
     Dates: start: 20220301, end: 20230307
  2. Zoloft after discontinuing Vyvanse [Concomitant]

REACTIONS (7)
  - Anxiety [None]
  - Dyskinesia [None]
  - Onychophagia [None]
  - Skin exfoliation [None]
  - Limb injury [None]
  - Haemorrhage [None]
  - Localised infection [None]

NARRATIVE: CASE EVENT DATE: 20230307
